FAERS Safety Report 4773277-0 (Version None)
Quarter: 2005Q3

REPORT INFORMATION
  Report Type: 
  Country: None (occurrence: None)
  Receive Date: 20050920
  Receipt Date: 20050826
  Transmission Date: 20060218
  Serious: Yes (Hospitalization)
  Sender: FDA-Public Use
  Company Number: US-BOEHRINGER INGELHEIM PHARMACEUTICALS, INC.-2005-BP-15029BP

PATIENT
  Sex: Female

DRUGS (3)
  1. SPIRIVA [Suspect]
     Indication: CHRONIC OBSTRUCTIVE PULMONARY DISEASE
     Route: 055
     Dates: start: 20041210, end: 20050228
  2. SPIRIVA [Suspect]
     Indication: EMPHYSEMA
  3. ALBUTEROL W/IPRATROPIUM [Concomitant]
     Indication: DYSPNOEA
     Route: 055

REACTIONS (1)
  - EMPHYSEMA [None]
